FAERS Safety Report 4487127-3 (Version None)
Quarter: 2004Q4

REPORT INFORMATION
  Report Type: 
  Country: None (occurrence: None)
  Receive Date: 20041027
  Receipt Date: 20041021
  Transmission Date: 20050328
  Serious: Yes (Death, Other)
  Sender: FDA-Public Use
  Company Number: PHEH2004US11360

PATIENT
  Age: 73 Year
  Sex: Female
  Weight: 51 kg

DRUGS (8)
  1. ZOMETA [Suspect]
     Indication: HYPERCALCAEMIA
     Dosage: 4 MG EVERY 4 WEEKS
     Route: 042
     Dates: start: 20031213, end: 20040521
  2. NEXIUM [Concomitant]
  3. PREMARIN [Concomitant]
  4. CPT-11 [Concomitant]
  5. CARBOPLATIN [Concomitant]
  6. TAXOTERE [Concomitant]
  7. GEMCITABINE [Concomitant]
  8. TOPOTECAN [Concomitant]

REACTIONS (5)
  - DEATH [None]
  - OSTEOMYELITIS [None]
  - OSTEONECROSIS [None]
  - WOUND [None]
  - WOUND DEBRIDEMENT [None]
